FAERS Safety Report 4277132-4 (Version None)
Quarter: 2004Q1

REPORT INFORMATION
  Report Type: 
  Country: None (occurrence: None)
  Receive Date: 20040120
  Receipt Date: 20031231
  Transmission Date: 20041129
  Serious: Yes (Life-Threatening)
  Sender: FDA-Public Use
  Company Number: 7143

PATIENT
  Age: 65 Year
  Sex: Female

DRUGS (6)
  1. LEUCOVORIN CALCIUM [Suspect]
     Indication: LARGE INTESTINE CARCINOMA
     Dosage: 75 MG
     Route: 048
     Dates: start: 20030924, end: 20031014
  2. LEUCOVORIN CALCIUM [Suspect]
     Indication: LARGE INTESTINE CARCINOMA
     Dosage: 75 MG
     Route: 048
     Dates: start: 20031022, end: 20031031
  3. IRINOTECAN HYDROCHLORIDE [Suspect]
     Indication: LARGE INTESTINE CARCINOMA
     Dosage: 140 MG
     Dates: start: 20030924, end: 20031001
  4. IRINOTECAN HYDROCHLORIDE [Suspect]
     Indication: LARGE INTESTINE CARCINOMA
     Dosage: 140 MG
     Dates: start: 20031022, end: 20031029
  5. TEGAFUR URACIL [Suspect]
     Indication: LARGE INTESTINE CARCINOMA
     Dosage: 450 MG/150 MG
     Dates: start: 20030924, end: 20031014
  6. TEGAFUR URACIL [Suspect]
     Indication: LARGE INTESTINE CARCINOMA
     Dosage: 450 MG/150 MG
     Dates: start: 20031014, end: 20031022

REACTIONS (5)
  - DIARRHOEA [None]
  - HAEMOGLOBIN DECREASED [None]
  - HEPATIC FUNCTION ABNORMAL [None]
  - PYREXIA [None]
  - WHITE BLOOD CELL COUNT DECREASED [None]
